FAERS Safety Report 4808398-7 (Version None)
Quarter: 2005Q4

REPORT INFORMATION
  Report Type: 
  Country: None (occurrence: None)
  Receive Date: 20051021
  Receipt Date: 20030919
  Transmission Date: 20060501
  Serious: No
  Sender: FDA-Public Use
  Company Number: FR_030902912

PATIENT
  Age: 20 Year
  Sex: Male

DRUGS (2)
  1. ZYPREXA [Suspect]
     Indication: BIPOLAR I DISORDER
     Dosage: 10 MG/DAY
     Dates: start: 20000101
  2. DEPAKOTE [Concomitant]

REACTIONS (3)
  - EOSINOPHILIA [None]
  - LEUKOPENIA [None]
  - NEUTROPENIA [None]
